FAERS Safety Report 8334464 (Version 5)
Quarter: 2012Q4

REPORT INFORMATION
  Report Type: 
  Country: US (occurrence: US)
  Receive Date: 20100723
  Receipt Date: 20121115
  Transmission Date: 20130627
  Serious: Yes (Death, Hospitalization, Other)
  Sender: FDA-Public Use
  Company Number: US-ACTELION-A-NJ2010-33988

PATIENT
  Age: 71 Year
  Sex: Female

DRUGS (4)
  1. TRACLEER [Suspect]
     Indication: PULMONARY ARTERIAL HYPERTENSION
     Dosage: UNK
     Route: 048
     Dates: end: 20121019
  2. REVATIO [Concomitant]
  3. COUMADIN [Concomitant]
  4. DIGITEK [Concomitant]

REACTIONS (7)
  - Post procedural sepsis [Fatal]
  - Postoperative adhesion [Fatal]
  - Colon cancer [Fatal]
  - Large intestinal ulcer [Unknown]
  - Gastrointestinal haemorrhage [Unknown]
  - Transfusion [Unknown]
  - Haemoglobin decreased [Unknown]
